FAERS Safety Report 9187267 (Version 1)
Quarter: 2013Q1

REPORT INFORMATION
  Report Type: Report from Study
  Country: US (occurrence: US)
  Receive Date: 20130321
  Receipt Date: 20130321
  Transmission Date: 20140127
  Serious: Yes (Other)
  Sender: FDA-Public Use
  Company Number: US-RB-019112-10

PATIENT
  Age: 39 Year
  Sex: Male
  Weight: 81 kg

DRUGS (5)
  1. SUBOXONE TABLET [Suspect]
     Indication: DRUG DEPENDENCE
     Route: 060
     Dates: start: 2009
  2. SUBOXONE TABLET [Suspect]
     Route: 060
     Dates: start: 201003
  3. SUBUTEX [Suspect]
     Indication: PRODUCT USED FOR UNKNOWN INDICATION
     Dosage: DOSING DETAILS UNKNOWN
     Route: 065
  4. SUBOXONE FILM [Suspect]
     Indication: PRODUCT USED FOR UNKNOWN INDICATION
     Dosage: SUBOXONE FILM; DOSING DETAILS UNKNOWN
     Route: 065
  5. XANAX [Concomitant]
     Indication: ANXIETY
     Dosage: DOSING DETAILS UNKNOWN
     Route: 048
     Dates: start: 2009, end: 2012

REACTIONS (21)
  - Drug detoxification [Recovered/Resolved]
  - Alcoholism [Not Recovered/Not Resolved]
  - Libido decreased [Not Recovered/Not Resolved]
  - Dandruff [Not Recovered/Not Resolved]
  - Dehydration [Not Recovered/Not Resolved]
  - Sexual dysfunction [Not Recovered/Not Resolved]
  - Respiratory depression [Not Recovered/Not Resolved]
  - Depressed mood [Not Recovered/Not Resolved]
  - Intentional drug misuse [Not Recovered/Not Resolved]
  - Hepatic pain [Not Recovered/Not Resolved]
  - Musculoskeletal pain [Not Recovered/Not Resolved]
  - Eye swelling [Not Recovered/Not Resolved]
  - Hypersomnia [Not Recovered/Not Resolved]
  - Fatigue [Not Recovered/Not Resolved]
  - Gallbladder disorder [Not Recovered/Not Resolved]
  - Apathy [Not Recovered/Not Resolved]
  - Asthenia [Not Recovered/Not Resolved]
  - Feeling abnormal [Not Recovered/Not Resolved]
  - Wrong technique in drug usage process [Recovered/Resolved]
  - Blood triglycerides increased [Not Recovered/Not Resolved]
  - Blood pressure increased [Not Recovered/Not Resolved]
